FAERS Safety Report 12582597 (Version 1)
Quarter: 2016Q3

REPORT INFORMATION
  Report Type: Spontaneous
  Country: US (occurrence: None)
  Receive Date: 20160721
  Receipt Date: 20160721
  Transmission Date: 20161109
  Serious: No
  Sender: FDA-Public Use
  Company Number: None

PATIENT
  Age: 71 Year
  Sex: Male

DRUGS (1)
  1. BEXAROTENE CAP 75MG [Suspect]
     Active Substance: BEXAROTENE
     Indication: MYCOSIS FUNGOIDES
     Dosage: 75MG 8 CAPS EVERY ORAL
     Route: 048
     Dates: start: 20160127

REACTIONS (5)
  - Skin discolouration [None]
  - Skin lesion [None]
  - Skin exfoliation [None]
  - Scab [None]
  - Erythema [None]

NARRATIVE: CASE EVENT DATE: 20160720
